FAERS Safety Report 10023949 (Version 1)
Quarter: 2014Q1

REPORT INFORMATION
  Report Type: Spontaneous
  Country: US (occurrence: None)
  Receive Date: 20140304
  Receipt Date: 20140304
  Transmission Date: 20141002
  Serious: Yes (Hospitalization, Other)
  Sender: FDA-Public Use
  Company Number: RB-60468-2013

PATIENT
  Age: 66 Year
  Sex: Male

DRUGS (6)
  1. SUBOXONE 8 MG [Suspect]
     Indication: DRUG DEPENDENCE
     Dosage: 8 MG TID, SUBLINGUAL, ( VARIOUS DOSES, CUTTING SUBLINGUAL)
     Route: 060
     Dates: start: 2011
  2. SUBOXONE 8 MG [Suspect]
     Indication: PAIN
     Dosage: 8 MG TID, SUBLINGUAL, ( VARIOUS DOSES, CUTTING SUBLINGUAL)
     Route: 060
     Dates: start: 2011
  3. SUBOXONE [Suspect]
     Indication: DRUG DEPENDENCE
     Dosage: FILM; VARIOUS DOSES, CUTTING; CURRENT DOSE 24 MG DAILY SUBLINGUAL
     Route: 060
  4. SUBOXONE [Suspect]
     Indication: PAIN
     Dosage: FILM; VARIOUS DOSES, CUTTING; CURRENT DOSE 24 MG DAILY SUBLINGUAL
     Route: 060
  5. TESTOSTERONE [Concomitant]
  6. HUMAN GROWTH HORMONE, RECOMBINANT [Concomitant]

REACTIONS (10)
  - Intentional underdose [None]
  - Wrong technique in drug usage process [None]
  - Drug withdrawal syndrome [None]
  - Nephrolithiasis [None]
  - Bronchitis [None]
  - Chest pain [None]
  - Oedema peripheral [None]
  - Dyspnoea [None]
  - Cardiac disorder [None]
  - Musculoskeletal stiffness [None]
